FAERS Safety Report 24299024 (Version 1)
Quarter: 2024Q3

REPORT INFORMATION
  Report Type: Report from Study
  Country: ZA (occurrence: None)
  Receive Date: 20240909
  Receipt Date: 20240909
  Transmission Date: 20241017
  Serious: Yes (Hospitalization)
  Sender: ASTRAZENECA
  Company Number: 2024A201462

PATIENT
  Age: 29 Year
  Sex: Female

DRUGS (9)
  1. BUDESONIDE\FORMOTEROL [Suspect]
     Active Substance: BUDESONIDE\FORMOTEROL
     Indication: Asthma
     Dosage: 4.5 MG, UNKNOWN UNKNOWN
     Route: 055
  2. FEMODENE ED [Concomitant]
     Indication: Contraception
     Route: 048
  3. DALACIN VC [Concomitant]
     Dosage: 20.0MG UNKNOWN
     Route: 061
  4. MACRODANTIN [Concomitant]
     Active Substance: NITROFURANTOIN
     Indication: Urinary tract infection
     Dosage: 100.0MG UNKNOWN
     Route: 048
  5. CLOBAZAM 10 ADCO [Concomitant]
     Indication: Anxiety
     Dosage: 10.0MG UNKNOWN
     Route: 048
  6. LAMOTRIGINE [Concomitant]
     Active Substance: LAMOTRIGINE
     Indication: Epilepsy
     Dosage: 100.0MG UNKNOWN
     Route: 048
  7. CITALOPRAM HYDROBROMIDE [Concomitant]
     Active Substance: CITALOPRAM HYDROBROMIDE
     Indication: Mental disorder
     Dosage: 20.0MG UNKNOWN
     Route: 048
  8. THEOPHYLLINE ANH [Concomitant]
     Indication: Bronchospasm
     Dosage: 200.0MG UNKNOWN
     Route: 048
  9. ALBUTEROL [Concomitant]
     Active Substance: ALBUTEROL
     Indication: Bronchospasm
     Dosage: 100.0MG UNKNOWN
     Route: 055

REACTIONS (1)
  - Bacterial infection [Unknown]
